FAERS Safety Report 7492819-8 (Version None)
Quarter: 2011Q2

REPORT INFORMATION
  Report Type: 
  Country: None (occurrence: None)
  Receive Date: 20110513
  Receipt Date: 20110426
  Transmission Date: 20111010
  Serious: Yes (Hospitalization, Disabling)
  Sender: FDA-Public Use
  Company Number: DSA_45527_2011

PATIENT
  Sex: Male

DRUGS (8)
  1. PROTONIX [Concomitant]
  2. WELLBUTRIN XL [Suspect]
     Indication: PRODUCT USED FOR UNKNOWN INDICATION
     Dosage: DF ORAL
     Route: 048
     Dates: start: 20040601, end: 20080601
  3. METFFORMIN HYDROCHLORIDE [Concomitant]
  4. AVANDIA [Suspect]
     Indication: TYPE 2 DIABETES MELLITUS
     Dosage: 4 MG, BID, ORAL 8,4 MG DAILY, ORAL (DF ORAL)
     Route: 048
     Dates: start: 20090101, end: 20091101
  5. AVANDIA [Suspect]
     Indication: TYPE 2 DIABETES MELLITUS
     Dosage: 4 MG, BID, ORAL 8,4 MG DAILY, ORAL (DF ORAL)
     Route: 048
     Dates: start: 20080101, end: 20090101
  6. AVANDIA [Suspect]
     Indication: TYPE 2 DIABETES MELLITUS
     Dosage: 4 MG, BID, ORAL 8,4 MG DAILY, ORAL (DF ORAL)
     Route: 048
     Dates: end: 20100519
  7. AVANDIA [Suspect]
     Indication: TYPE 2 DIABETES MELLITUS
     Dosage: 4 MG, BID, ORAL 8,4 MG DAILY, ORAL (DF ORAL)
     Route: 048
     Dates: start: 20060101, end: 20090901
  8. AVANDIA [Suspect]
     Indication: TYPE 2 DIABETES MELLITUS
     Dosage: 4 MG, BID, ORAL 8,4 MG DAILY, ORAL (DF ORAL)
     Route: 048
     Dates: start: 20060101, end: 20060101

REACTIONS (17)
  - PALPITATIONS [None]
  - DRY MOUTH [None]
  - MALAISE [None]
  - GASTRIC OPERATION [None]
  - CHOLECYSTECTOMY [None]
  - LIVER INJURY [None]
  - DECREASED APPETITE [None]
  - OBSTRUCTION [None]
  - ABDOMINAL PAIN [None]
  - HEADACHE [None]
  - TRANSIENT ISCHAEMIC ATTACK [None]
  - ABDOMINAL DISCOMFORT [None]
  - DIABETES MELLITUS INADEQUATE CONTROL [None]
  - HEPATIC PAIN [None]
  - VISION BLURRED [None]
  - CEREBROVASCULAR ACCIDENT [None]
  - DIZZINESS [None]
